FAERS Safety Report 11874712 (Version 1)
Quarter: 2015Q4

REPORT INFORMATION
  Report Type: Report from Study
  Country: US (occurrence: US)
  Receive Date: 20151229
  Receipt Date: 20151229
  Transmission Date: 20160305
  Serious: No
  Sender: FDA-Public Use
  Company Number: PHEH2013US026869

PATIENT
  Age: 75 Year
  Sex: Female

DRUGS (1)
  1. TOBI [Suspect]
     Active Substance: TOBRAMYCIN
     Indication: BRONCHIECTASIS
     Dosage: 300 (UNITS UNSPECIFIED), BID
     Route: 055
     Dates: start: 20130603, end: 20130730

REACTIONS (2)
  - Off label use [Unknown]
  - Aphonia [Unknown]

NARRATIVE: CASE EVENT DATE: 20130726
